FAERS Safety Report 10366687 (Version 1)
Quarter: 2014Q3

REPORT INFORMATION
  Report Type: Spontaneous
  Country: US (occurrence: US)
  Receive Date: 20140806
  Receipt Date: 20140806
  Transmission Date: 20150326
  Serious: No
  Sender: FDA-Public Use
  Company Number: US-009507513-1407USA013789

PATIENT
  Sex: Female

DRUGS (7)
  1. VICTRELIS [Suspect]
     Active Substance: BOCEPREVIR
     Indication: HEPATITIS C
     Dosage: FOUR 200 MG 7-9 HRS APART WITH FOOD (800 MG, TID)
     Route: 048
     Dates: start: 20121206
  2. ZANTAC [Concomitant]
     Active Substance: RANITIDINE HYDROCHLORIDE
  3. PEGASYS [Suspect]
     Active Substance: PEGINTERFERON ALFA-2A
     Indication: HEPATITIS C
     Dosage: 02-JAN-2013 180 MICROGRAM, QW
     Route: 058
     Dates: start: 20121106
  4. COPEGUS [Suspect]
     Active Substance: RIBAVIRIN
     Indication: HEPATITIS C
     Dosage: QAM AND QPM. 02-JAN-2013 (600 MG, BID)
     Route: 048
     Dates: start: 20121106
  5. IBUPROFEN. [Concomitant]
     Active Substance: IBUPROFEN
  6. AMBIEN [Concomitant]
     Active Substance: ZOLPIDEM TARTRATE
  7. ZOLOFT [Concomitant]
     Active Substance: SERTRALINE HYDROCHLORIDE

REACTIONS (2)
  - Vision blurred [Unknown]
  - Hepatic cirrhosis [Unknown]
